FAERS Safety Report 5180052-4 (Version None)
Quarter: 2006Q4

REPORT INFORMATION
  Report Type: 
  Country: None (occurrence: None)
  Receive Date: 20061211
  Receipt Date: 20050803
  Transmission Date: 20070319
  Serious: Yes (Other)
  Sender: FDA-Public Use
  Company Number: CHNY2005GB00824

PATIENT
  Age: 11 Year
  Sex: Male

DRUGS (1)
  1. SCOPODERM TTS (NCH)(HYOSCINE HYDROBROMIDE) TRANS-THERAPEUTIC-SYSTEM [Suspect]
     Indication: PROPHYLAXIS AGAINST MOTION SICKNESS
     Dosage: 1 DF, ONCE/SINGLE; TRANSDERMAL
     Route: 062
     Dates: start: 20050314, end: 20050314

REACTIONS (9)
  - CHILLS [None]
  - CONTUSION [None]
  - FATIGUE [None]
  - FEELING COLD [None]
  - HEAD INJURY [None]
  - LOSS OF CONSCIOUSNESS [None]
  - MALAISE [None]
  - MOUTH INJURY [None]
  - SOMNOLENCE [None]
